FAERS Safety Report 20896402 (Version 1)
Quarter: 2022Q2

REPORT INFORMATION
  Report Type: Spontaneous
  Country: US (occurrence: None)
  Receive Date: 20220531
  Receipt Date: 20220531
  Transmission Date: 20220721
  Serious: No
  Sender: FDA-Public Use
  Company Number: None

PATIENT
  Age: 29 Year
  Sex: Female

DRUGS (1)
  1. REBIF [Suspect]
     Active Substance: INTERFERON BETA-1A
     Indication: Multiple sclerosis
     Dosage: 44MCG 3 TIMES WEEKLY SUBCUTANEOUS?
     Route: 058
     Dates: start: 20190417

REACTIONS (1)
  - Pyrexia [None]

NARRATIVE: CASE EVENT DATE: 20220530
